FAERS Safety Report 13965819 (Version 2)
Quarter: 2018Q3

REPORT INFORMATION
  Report Type: Spontaneous
  Country: US (occurrence: US)
  Receive Date: 20170913
  Receipt Date: 20180911
  Transmission Date: 20181010
  Serious: Yes (Hospitalization)
  Sender: FDA-Public Use
  Company Number: US-MYLANLABS-2017M1056429

PATIENT
  Age: 34 Year
  Sex: Female

DRUGS (2)
  1. BUPRENORPHINE. [Suspect]
     Active Substance: BUPRENORPHINE
     Indication: WITHDRAWAL SYNDROME
     Dosage: 4MG
     Route: 060
  2. BUPRENORPHINE. [Suspect]
     Active Substance: BUPRENORPHINE
     Dosage: FOLLOWED BY 2 MG AFTER 2 HOURS AND ANOTHER 2 MG AFTER 4 HOURS
     Route: 060

REACTIONS (1)
  - Stress cardiomyopathy [Recovered/Resolved]
